FAERS Safety Report 17096237 (Version 2)
Quarter: 2020Q1

REPORT INFORMATION
  Report Type: Spontaneous
  Country: CA (occurrence: CA)
  Receive Date: 20191202
  Receipt Date: 20200129
  Transmission Date: 20200409
  Serious: Yes (Disabling, Other)
  Sender: FDA-Public Use
  Company Number: CA-AMGEN-CANSP2019198471

PATIENT
  Age: 76 Year
  Sex: Female
  Weight: 65 kg

DRUGS (3)
  1. CALCIUM [Concomitant]
     Active Substance: CALCIUM
  2. PROLIA [Suspect]
     Active Substance: DENOSUMAB
     Indication: OSTEOPOROSIS POSTMENOPAUSAL
     Dosage: 60 MILLIGRAM PER MILLILITRE
     Route: 058
     Dates: start: 20180510
  3. VITAMIN D [ERGOCALCIFEROL] [Concomitant]
     Active Substance: ERGOCALCIFEROL

REACTIONS (3)
  - Osteochondral fracture [Not Recovered/Not Resolved]
  - Fall [Unknown]
  - Pelvic fracture [Recovered/Resolved]

NARRATIVE: CASE EVENT DATE: 20190218
